FAERS Safety Report 19725913 (Version 1)
Quarter: 2021Q3

REPORT INFORMATION
  Report Type: Spontaneous
  Country: US (occurrence: US)
  Receive Date: 20210819
  Receipt Date: 20210819
  Transmission Date: 20211014
  Serious: No
  Sender: FDA-Public Use
  Company Number: US-MANNKIND CORPORATION-2021MK000075

PATIENT
  Age: 37 Year
  Sex: Female
  Weight: 59.02 kg

DRUGS (12)
  1. AFREZZA [Suspect]
     Active Substance: INSULIN HUMAN
     Indication: TYPE 1 DIABETES MELLITUS
     Dates: start: 202008, end: 202011
  2. AFREZZA [Suspect]
     Active Substance: INSULIN HUMAN
     Dates: start: 202008, end: 202011
  3. NOVOLOG [Concomitant]
     Active Substance: INSULIN ASPART
     Indication: TYPE 1 DIABETES MELLITUS
     Dates: start: 2011
  4. BABY ASPIRIN [Concomitant]
     Active Substance: ASPIRIN
     Indication: DEEP VEIN THROMBOSIS
     Route: 048
  5. AFREZZA [Suspect]
     Active Substance: INSULIN HUMAN
     Dates: start: 202008, end: 202011
  6. WELLBUTRIN [Concomitant]
     Active Substance: BUPROPION HYDROCHLORIDE
     Indication: DEPRESSION
     Route: 048
     Dates: start: 202001
  7. AFREZZA [Suspect]
     Active Substance: INSULIN HUMAN
     Dates: start: 202008, end: 202011
  8. LEVOTHYROXINE. [Concomitant]
     Active Substance: LEVOTHYROXINE
     Indication: HYPOTHYROIDISM
     Route: 048
     Dates: start: 2000
  9. AFREZZA [Suspect]
     Active Substance: INSULIN HUMAN
     Dates: start: 202102, end: 202104
  10. AFREZZA [Suspect]
     Active Substance: INSULIN HUMAN
     Dates: start: 202008, end: 202011
  11. IBUPROFEN. [Concomitant]
     Active Substance: IBUPROFEN
     Indication: MIGRAINE
     Route: 048
  12. AFREZZA [Suspect]
     Active Substance: INSULIN HUMAN
     Dates: start: 202008, end: 202011

REACTIONS (5)
  - Cough [Unknown]
  - Hypopnoea [Unknown]
  - Blood glucose increased [Unknown]
  - Stress [Unknown]
  - Respiratory rate increased [Unknown]

NARRATIVE: CASE EVENT DATE: 202008
